FAERS Safety Report 5495493-5 (Version None)
Quarter: 2007Q4

REPORT INFORMATION
  Report Type: 
  Country: None (occurrence: None)
  Receive Date: 20071023
  Receipt Date: 20071010
  Transmission Date: 20080405
  Serious: Yes (Hospitalization)
  Sender: FDA-Public Use
  Company Number: SPV1-2007-04479

PATIENT
  Age: 41 Year
  Sex: Male
  Weight: 88.4 kg

DRUGS (2)
  1. LIALDA [Suspect]
     Indication: CROHN'S DISEASE
     Dosage: 1.2 G, 2X/DAY: BID, ORAL
     Route: 048
     Dates: start: 20070926, end: 20071007
  2. NEXIUM [Concomitant]

REACTIONS (6)
  - CONDITION AGGRAVATED [None]
  - CROHN'S DISEASE [None]
  - DECREASED APPETITE [None]
  - ILEITIS [None]
  - ORAL INTAKE REDUCED [None]
  - SMALL INTESTINAL OBSTRUCTION [None]
